FAERS Safety Report 8900639 (Version 3)
Quarter: 2015Q4

REPORT INFORMATION
  Report Type: Report from Study
  Country: BR (occurrence: BR)
  Receive Date: 20121109
  Receipt Date: 20151012
  Transmission Date: 20160305
  Serious: Yes (Hospitalization, Other)
  Sender: FDA-Public Use
  Company Number: BR-ROCHE-1151750

PATIENT
  Age: 47 Year
  Sex: Female
  Weight: 67 kg

DRUGS (18)
  1. MABTHERA [Suspect]
     Active Substance: RITUXIMAB
     Indication: DERMATOMYOSITIS
     Route: 042
     Dates: start: 20090801
  2. MABTHERA [Suspect]
     Active Substance: RITUXIMAB
     Route: 042
     Dates: start: 20110321
  3. MABTHERA [Suspect]
     Active Substance: RITUXIMAB
     Route: 042
     Dates: start: 20111007
  4. ALENIA (BRAZIL) [Concomitant]
     Active Substance: BUDESONIDE\FORMOTEROL FUMARATE
  5. GABAPENTIN. [Concomitant]
     Active Substance: GABAPENTIN
  6. DEPURA [Concomitant]
     Active Substance: CHOLECALCIFEROL
  7. MABTHERA [Suspect]
     Active Substance: RITUXIMAB
     Route: 042
     Dates: start: 20120330
  8. PROTOS (BRAZIL) [Concomitant]
     Active Substance: STRONTIUM RANELATE
  9. TYLEX (BRAZIL) [Concomitant]
  10. PREDNISONE. [Concomitant]
     Active Substance: PREDNISONE
  11. FLUOXETINE [Concomitant]
     Active Substance: FLUOXETINE HYDROCHLORIDE
  12. MABTHERA [Suspect]
     Active Substance: RITUXIMAB
     Route: 042
     Dates: start: 20100815
  13. MABTHERA [Suspect]
     Active Substance: RITUXIMAB
     Route: 042
     Dates: start: 20111018
  14. ZANTAC [Concomitant]
     Active Substance: RANITIDINE HYDROCHLORIDE
  15. MABTHERA [Suspect]
     Active Substance: RITUXIMAB
     Route: 042
     Dates: start: 20110303
  16. MABTHERA [Suspect]
     Active Substance: RITUXIMAB
     Route: 042
     Dates: start: 20120413
  17. BONVIVA [Concomitant]
     Active Substance: IBANDRONATE SODIUM
  18. ADDERA PLUS [Concomitant]

REACTIONS (6)
  - Respiratory tract infection [Unknown]
  - Arthralgia [Not Recovered/Not Resolved]
  - Osteonecrosis [Recovered/Resolved]
  - Pulmonary fibrosis [Unknown]
  - Immunodeficiency [Not Recovered/Not Resolved]
  - Dermatomyositis [Unknown]

NARRATIVE: CASE EVENT DATE: 201203
